FAERS Safety Report 12140380 (Version 1)
Quarter: 2016Q1

REPORT INFORMATION
  Report Type: Spontaneous
  Country: GB (occurrence: GB)
  Receive Date: 20160303
  Receipt Date: 20160303
  Transmission Date: 20160526
  Serious: Yes (Other)
  Sender: FDA-Public Use
  Company Number: GB-TEVA-638862ACC

PATIENT

DRUGS (4)
  1. CLENIL MODULITE [Suspect]
     Active Substance: BECLOMETHASONE DIPROPIONATE
     Dates: end: 20160204
  2. CLARITHROMYCIN. [Suspect]
     Active Substance: CLARITHROMYCIN
     Indication: ANTIBIOTIC THERAPY
     Dates: start: 20160128, end: 20160204
  3. PREDNISOLONE. [Concomitant]
     Active Substance: PREDNISOLONE
  4. ERYTHROMYCIN. [Concomitant]
     Active Substance: ERYTHROMYCIN
     Indication: ANTIBIOTIC THERAPY

REACTIONS (30)
  - Nausea [Unknown]
  - Insomnia [Recovered/Resolved]
  - Decreased appetite [Unknown]
  - Vomiting [Unknown]
  - Tachycardia [Recovered/Resolved]
  - Chest discomfort [Unknown]
  - Abdominal pain upper [Recovered/Resolved]
  - Dyspnoea [Recovering/Resolving]
  - Pain [Recovering/Resolving]
  - Pollakiuria [Recovering/Resolving]
  - Limb discomfort [Recovered/Resolved]
  - Pain in extremity [Not Recovered/Not Resolved]
  - Productive cough [Not Recovered/Not Resolved]
  - Hypersomnia [Unknown]
  - Condition aggravated [Unknown]
  - Chest pain [Recovered/Resolved]
  - Diarrhoea [Recovered/Resolved]
  - Dysgeusia [Not Recovered/Not Resolved]
  - Tearfulness [Not Recovered/Not Resolved]
  - Skin discolouration [Recovered/Resolved]
  - Scintillating scotoma [Unknown]
  - Malaise [Recovering/Resolving]
  - Hypotonia [Recovered/Resolved]
  - Infrequent bowel movements [Unknown]
  - Wheezing [Recovered/Resolved]
  - Peripheral coldness [Recovered/Resolved]
  - Radial pulse abnormal [Recovered/Resolved]
  - Asthenia [Recovering/Resolving]
  - Tongue discolouration [Unknown]
  - Sensory disturbance [Not Recovered/Not Resolved]

NARRATIVE: CASE EVENT DATE: 20160127
